FAERS Safety Report 16640860 (Version 3)
Quarter: 2019Q3

REPORT INFORMATION
  Report Type: Report from Study
  Country: US (occurrence: US)
  Receive Date: 20190729
  Receipt Date: 20190903
  Transmission Date: 20191004
  Serious: No
  Sender: FDA-Public Use
  Company Number: US-ELI_LILLY_AND_COMPANY-US201907007838

PATIENT
  Sex: Female

DRUGS (1)
  1. TERIPARATIDE [Suspect]
     Active Substance: TERIPARATIDE
     Indication: PRODUCT USED FOR UNKNOWN INDICATION
     Dosage: UNK, UNKNOWN
     Route: 065
     Dates: start: 20190619

REACTIONS (15)
  - Varicose vein [Unknown]
  - Anxiety [Unknown]
  - Limb discomfort [Unknown]
  - Stress [Unknown]
  - Gait disturbance [Unknown]
  - Product dose omission [Unknown]
  - Memory impairment [Unknown]
  - Pain [Unknown]
  - Suspiciousness [Unknown]
  - Feeling abnormal [Unknown]
  - Muscular weakness [Unknown]
  - Arthropathy [Unknown]
  - Muscle atrophy [Unknown]
  - Fear [Unknown]
  - Injection site haemorrhage [Unknown]
